FAERS Safety Report 16714385 (Version 1)
Quarter: 2019Q3

REPORT INFORMATION
  Report Type: Spontaneous
  Country: IN (occurrence: IN)
  Receive Date: 20190819
  Receipt Date: 20190819
  Transmission Date: 20191004
  Serious: Yes (Other)
  Sender: FDA-Public Use
  Company Number: IN-ZYDUS-039828

PATIENT
  Age: 55 Year
  Sex: Male

DRUGS (1)
  1. FLUCONAZOLE. [Suspect]
     Active Substance: FLUCONAZOLE
     Indication: BODY TINEA
     Route: 048

REACTIONS (7)
  - Burning sensation [Recovered/Resolved]
  - Dermatitis bullous [Recovered/Resolved]
  - Fixed eruption [Recovered/Resolved]
  - Lip erosion [Recovered/Resolved]
  - Genital erosion [Recovered/Resolved]
  - Therapeutic product cross-reactivity [Unknown]
  - Rash erythematous [Recovered/Resolved]
